FAERS Safety Report 25999963 (Version 1)
Quarter: 2025Q4

REPORT INFORMATION
  Report Type: Report from Study
  Country: EU (occurrence: EU)
  Receive Date: 20251105
  Receipt Date: 20251105
  Transmission Date: 20260118
  Serious: Yes (Other)
  Sender: RANBAXY
  Company Number: EU-SUN PHARMACEUTICAL INDUSTRIES INC-2025R1-534323

PATIENT
  Age: 26 Year
  Sex: Male

DRUGS (3)
  1. PAZOPANIB [Suspect]
     Active Substance: PAZOPANIB
     Indication: Desmoplastic small round cell tumour
     Dosage: UNK
     Route: 065
  2. NIVOLUMAB [Suspect]
     Active Substance: NIVOLUMAB
     Indication: Desmoplastic small round cell tumour
     Dosage: UNK
     Route: 065
  3. TROFOSFAMIDE [Suspect]
     Active Substance: TROFOSFAMIDE
     Indication: Desmoplastic small round cell tumour
     Dosage: UNK
     Route: 065

REACTIONS (1)
  - Off label use [Unknown]
